FAERS Safety Report 14986199 (Version 2)
Quarter: 2018Q2

REPORT INFORMATION
  Report Type: Report from Study
  Country: US (occurrence: US)
  Receive Date: 20180607
  Receipt Date: 20180613
  Transmission Date: 20180711
  Serious: Yes (Life-Threatening, Hospitalization)
  Sender: FDA-Public Use
  Company Number: US-EXELIXIS-XL18418014362

PATIENT
  Age: 24 Year
  Sex: Female
  Weight: 69.3 kg

DRUGS (2)
  1. XL184 [Suspect]
     Active Substance: CABOZANTINIB
     Indication: PERIPHERAL PRIMITIVE NEUROECTODERMAL TUMOUR OF SOFT TISSUE
  2. XL184 [Suspect]
     Active Substance: CABOZANTINIB
     Indication: EWING^S SARCOMA
     Dosage: 40 MG/M2, QD
     Route: 048
     Dates: start: 20180314

REACTIONS (6)
  - Pleuritic pain [Unknown]
  - Cardiac tamponade [Unknown]
  - Musculoskeletal chest pain [Unknown]
  - Pericardial effusion [Unknown]
  - Hypotension [Unknown]
  - Sinus tachycardia [Unknown]

NARRATIVE: CASE EVENT DATE: 20180428
